FAERS Safety Report 9791605 (Version 2)
Quarter: 2014Q1

REPORT INFORMATION
  Report Type: Report from Study
  Country: DE (occurrence: DE)
  Receive Date: 20140102
  Receipt Date: 20140102
  Transmission Date: 20141002
  Serious: Yes (Other)
  Sender: FDA-Public Use
  Company Number: DE-ROCHE-1309344

PATIENT
  Age: 66 Year
  Sex: Male

DRUGS (5)
  1. VEMURAFENIB [Suspect]
     Indication: MALIGNANT MELANOMA
     Route: 048
     Dates: start: 201303
  2. VEMURAFENIB [Suspect]
     Route: 048
     Dates: start: 20130214
  3. SIMVASTATIN [Concomitant]
     Indication: ARTERIOSCLEROSIS
     Dosage: FREQUENCY 0-0-1
     Route: 048
  4. NOVALGIN [Concomitant]
     Route: 048
  5. ASS [Concomitant]
     Indication: ARTERIOSCLEROSIS
     Dosage: FREQUENCY 1-0-0
     Route: 048

REACTIONS (5)
  - Squamous cell carcinoma of skin [Recovered/Resolved]
  - Carcinoma in situ [Recovered/Resolved]
  - Actinic keratosis [Recovered/Resolved]
  - Fatigue [Recovered/Resolved]
  - Dizziness [Unknown]
